FAERS Safety Report 6018823-4 (Version None)
Quarter: 2008Q4

REPORT INFORMATION
  Report Type: 
  Country: None (occurrence: None)
  Receive Date: 20081223
  Receipt Date: 20081212
  Transmission Date: 20090506
  Serious: Yes (Hospitalization)
  Sender: FDA-Public Use
  Company Number: US-ELI_LILLY_AND_COMPANY-US200812003616

PATIENT
  Sex: Female

DRUGS (8)
  1. CYMBALTA [Suspect]
     Dates: start: 20070101
  2. REBIF [Concomitant]
     Indication: MULTIPLE SCLEROSIS
     Dosage: 44 MEQ, 3/W
     Route: 058
     Dates: start: 20070517
  3. BACLOFEN [Concomitant]
     Indication: MUSCLE SPASMS
     Dosage: 10 MG, 3/D
  4. LYRICA [Concomitant]
     Indication: FIBROMYALGIA
     Dosage: 75 MG, 3/D
  5. LYRICA [Concomitant]
     Dosage: 150 MG, EACH EVENING
  6. VICODIN [Concomitant]
     Indication: PAIN
     Dosage: 1 D/F, 4/D
  7. XANAX [Concomitant]
     Indication: ANXIETY
     Dosage: 2 MG, 4/D
  8. ADDERALL 10 [Concomitant]
     Indication: FATIGUE
     Dosage: 2 D/F, 2/D

REACTIONS (8)
  - AFFECT LABILITY [None]
  - ANOREXIA [None]
  - APHASIA [None]
  - DRUG TOXICITY [None]
  - FEELING ABNORMAL [None]
  - HYPOAESTHESIA [None]
  - INFECTION [None]
  - MULTIPLE SCLEROSIS [None]
